FAERS Safety Report 9387636 (Version 1)
Quarter: 2013Q3

REPORT INFORMATION
  Report Type: Report from Study
  Country: CN (occurrence: CN)
  Receive Date: 20130708
  Receipt Date: 20130708
  Transmission Date: 20140515
  Serious: Yes (Other)
  Sender: FDA-Public Use
  Company Number: CN-ROCHE-1243370

PATIENT
  Sex: 0

DRUGS (3)
  1. CAPECITABINE [Suspect]
     Indication: RECTAL ADENOCARCINOMA
     Route: 065
  2. CAPECITABINE [Suspect]
     Dosage: DAY 1-14
     Route: 065
  3. OXALIPLATIN [Suspect]
     Indication: RECTAL ADENOCARCINOMA
     Route: 065

REACTIONS (6)
  - Skin toxicity [Unknown]
  - Haematotoxicity [Unknown]
  - Diarrhoea [Unknown]
  - Fatigue [Unknown]
  - Radiation skin injury [Unknown]
  - Neurotoxicity [Unknown]
